FAERS Safety Report 20145869 (Version 2)
Quarter: 2021Q4

REPORT INFORMATION
  Report Type: Report from Study
  Country: HK (occurrence: HK)
  Receive Date: 20211203
  Receipt Date: 20211221
  Transmission Date: 20220303
  Serious: Yes (Hospitalization)
  Sender: FDA-Public Use
  Company Number: HK-PFIZER INC-202101663889

PATIENT
  Age: 56 Year
  Sex: Female
  Weight: 53.4 kg

DRUGS (3)
  1. AVELUMAB [Suspect]
     Active Substance: AVELUMAB
     Indication: Nasopharyngeal cancer
     Dosage: 534 MG, CYCLIC (Q2W)
     Route: 042
     Dates: start: 20210903, end: 20211112
  2. AXITINIB [Suspect]
     Active Substance: AXITINIB
     Indication: Nasopharyngeal cancer
     Dosage: 5 MG, 2X/DAY
     Route: 048
     Dates: start: 20210903, end: 20210916
  3. AXITINIB [Suspect]
     Active Substance: AXITINIB
     Dosage: 3 MG, 2X/DAY
     Route: 048
     Dates: start: 20210917, end: 20211028

REACTIONS (1)
  - Osteoradionecrosis [Recovered/Resolved with Sequelae]

NARRATIVE: CASE EVENT DATE: 20211125
